FAERS Safety Report 6381163-8 (Version None)
Quarter: 2009Q3

REPORT INFORMATION
  Report Type: 
  Country: None (occurrence: None)
  Receive Date: 20090924
  Receipt Date: 20090909
  Transmission Date: 20100115
  Serious: Yes (Other)
  Sender: FDA-Public Use
  Company Number: A-CH2009-27195

PATIENT
  Age: 39 Year
  Sex: Female
  Weight: 71 kg

DRUGS (5)
  1. TRACLEER [Suspect]
     Indication: SCLERODERMA
     Dosage: 62.5 MG, BID, ORAL
     Route: 048
     Dates: start: 20090714, end: 20090814
  2. CELLCEPT [Suspect]
     Dates: start: 20070714
  3. RISEDRONATE SODIUM [Suspect]
     Dates: start: 20090604
  4. PREDNISONE TAB [Concomitant]
  5. CALCIUM (CALCIUM) [Concomitant]

REACTIONS (5)
  - ABORTION INDUCED [None]
  - DRUG EXPOSURE DURING PREGNANCY [None]
  - PREGNANCY WITH CONTRACEPTIVE DEVICE [None]
  - TREATMENT NONCOMPLIANCE [None]
  - TWIN PREGNANCY [None]
